FAERS Safety Report 10312001 (Version 1)
Quarter: 2014Q3

REPORT INFORMATION
  Report Type: Spontaneous
  Country: CH (occurrence: None)
  Receive Date: 20140714
  Receipt Date: 20140714
  Transmission Date: 20150326
  Serious: Yes (Other)
  Sender: FDA-Public Use
  Company Number: 20140401

PATIENT
  Age: 31 Year
  Sex: Female
  Weight: 86 kg

DRUGS (3)
  1. AMPICILLIN [Concomitant]
     Active Substance: AMPICILLIN
  2. KLACID (CLARITHROMYCIN) [Concomitant]
     Active Substance: CLARITHROMYCIN
  3. FERINJECT [Suspect]
     Active Substance: FERRIC CARBOXYMALTOSE
     Indication: IRON DEFICIENCY ANAEMIA
     Dates: start: 20140515, end: 20140515

REACTIONS (5)
  - Maternal exposure timing unspecified [None]
  - Rash pruritic [None]
  - Drug hypersensitivity [None]
  - Foetal death [None]
  - Premature delivery [None]

NARRATIVE: CASE EVENT DATE: 2014
